FAERS Safety Report 16150802 (Version 1)
Quarter: 2019Q2

REPORT INFORMATION
  Report Type: Spontaneous
  Country: US (occurrence: US)
  Receive Date: 20190402
  Receipt Date: 20190402
  Transmission Date: 20190711
  Serious: No
  Sender: FDA-Public Use
  Company Number: US-SA-2019SA087145

PATIENT

DRUGS (5)
  1. ALLEGRA [Suspect]
     Active Substance: FEXOFENADINE HYDROCHLORIDE
     Indication: HEADACHE
  2. FLONASE [Concomitant]
     Active Substance: FLUTICASONE PROPIONATE
  3. TYLENOL [Concomitant]
     Active Substance: ACETAMINOPHEN
  4. ALLEGRA [Suspect]
     Active Substance: FEXOFENADINE HYDROCHLORIDE
     Indication: SINUS DISORDER
  5. CLARITINE [Concomitant]
     Active Substance: LORATADINE

REACTIONS (1)
  - Drug ineffective [Unknown]
